FAERS Safety Report 7043343-8 (Version None)
Quarter: 2010Q3

REPORT INFORMATION
  Report Type: 
  Country: None (occurrence: None)
  Receive Date: 20100929
  Receipt Date: 20100804
  Transmission Date: 20110219
  Serious: No
  Sender: FDA-Public Use
  Company Number: US-WYE-H16779610

PATIENT
  Age: 58 Year
  Sex: Female
  Weight: 81.72 kg

DRUGS (5)
  1. PRISTIQ [Suspect]
     Indication: DEPRESSION
     Dosage: (50 MG 1X PER 1 DAY), (100 MG 1X PER 1 DAY)
     Dates: start: 20100101, end: 20100101
  2. PRISTIQ [Suspect]
     Indication: DEPRESSION
     Dosage: (50 MG 1X PER 1 DAY), (100 MG 1X PER 1 DAY)
     Dates: start: 20100101
  3. WELLBUTRIN [Suspect]
     Indication: SLEEP DISORDER
     Dosage: ^10 MG^ ONCE DAILY AT BEDTIME
     Dates: start: 20100101
  4. ASPIRIN [Concomitant]
  5. MULTIVIT (VITAMIN NOS) [Concomitant]

REACTIONS (3)
  - ABNORMAL DREAMS [None]
  - DRUG EFFECT DECREASED [None]
  - HYPERHIDROSIS [None]
